FAERS Safety Report 12159105 (Version 1)
Quarter: 2016Q1

REPORT INFORMATION
  Report Type: Spontaneous
  Country: US (occurrence: None)
  Receive Date: 20160307
  Receipt Date: 20160307
  Transmission Date: 20160526
  Serious: No
  Sender: FDA-Public Use
  Company Number: None

PATIENT
  Age: 61 Year
  Sex: Female
  Weight: 52.16 kg

DRUGS (6)
  1. VITAMINE C [Concomitant]
     Active Substance: ASCORBIC ACID
  2. MULTIPLE VITAMINE [Concomitant]
  3. METAMUSAL [Concomitant]
  4. CALCIUM [Concomitant]
     Active Substance: CALCIUM
  5. VITAMINE [Concomitant]
  6. AZITHROMYCIN 250MG [Suspect]
     Active Substance: AZITHROMYCIN ANHYDROUS
     Indication: NASOPHARYNGITIS
     Dosage: 7 2 FIRST DAY ONE TILL GONE MOUTH
     Route: 048
     Dates: start: 20160201, end: 20160203

REACTIONS (2)
  - Dizziness [None]
  - Vertigo [None]

NARRATIVE: CASE EVENT DATE: 20160202
